FAERS Safety Report 20155747 (Version 1)
Quarter: 2021Q4

REPORT INFORMATION
  Report Type: Report from Study
  Country: PK (occurrence: PK)
  Receive Date: 20211207
  Receipt Date: 20211207
  Transmission Date: 20220303
  Serious: Yes (Death)
  Sender: FDA-Public Use
  Company Number: PK-NOVARTISPH-NVSC2021PK278328

PATIENT
  Age: 47 Year
  Sex: Male
  Weight: 50 kg

DRUGS (1)
  1. GLIVEC [Suspect]
     Active Substance: IMATINIB MESYLATE
     Indication: Acute lymphocytic leukaemia
     Dosage: 600 MG, QD
     Route: 048
     Dates: start: 20190819

REACTIONS (1)
  - Death [Fatal]

NARRATIVE: CASE EVENT DATE: 20190824
